FAERS Safety Report 5086364-7 (Version None)
Quarter: 2006Q3

REPORT INFORMATION
  Report Type: 
  Country: None (occurrence: None)
  Receive Date: 20060823
  Receipt Date: 20060811
  Transmission Date: 20061208
  Serious: Yes (Hospitalization)
  Sender: FDA-Public Use
  Company Number: ES-BRISTOL-MYERS SQUIBB COMPANY-13472790

PATIENT
  Sex: Male

DRUGS (2)
  1. CISPLATIN [Suspect]
  2. TS-1 [Suspect]

REACTIONS (1)
  - GASTRIC HAEMORRHAGE [None]
